FAERS Safety Report 9667936 (Version 2)
Quarter: 2014Q2

REPORT INFORMATION
  Report Type: Spontaneous
  Country: US (occurrence: None)
  Receive Date: 20131101
  Receipt Date: 20140602
  Transmission Date: 20141212
  Serious: Yes (Other)
  Sender: FDA-Public Use
  Company Number: 2013-US-002369

PATIENT
  Age: 68 Year
  Sex: Male
  Weight: 101.1 kg

DRUGS (7)
  1. XYREM (SODIUM OXYBATE) ORAL SOLUTION, 500MG/ML [Suspect]
     Indication: NARCOLEPSY
     Route: 048
     Dates: start: 20131016
  2. XYREM (SODIUM OXYBATE) ORAL SOLUTION, 500MG/ML [Suspect]
     Indication: CATAPLEXY
     Route: 048
     Dates: start: 20131016
  3. ACTOS (PIOGLITAZONE HYDROCHLORIDE) [Concomitant]
  4. GLUCOSAMINE CHONDROITIN (CHONDROITIN SULFATE, GLUCOSAMINE) [Concomitant]
  5. METAMUCIL (PSYLLIUM HYDROPHILLIC MUCILLOID) [Concomitant]
  6. GLIPIZIDE (GLIPIZIDE) [Concomitant]
  7. LISINOPRIL (LISINOPRIL) [Concomitant]

REACTIONS (4)
  - Sleep apnoea syndrome [None]
  - Constipation [None]
  - Feeling abnormal [None]
  - Myalgia [None]
